FAERS Safety Report 8421467 (Version 5)
Quarter: 2014Q1

REPORT INFORMATION
  Report Type: Spontaneous
  Country: JP (occurrence: JP)
  Receive Date: 20120222
  Receipt Date: 20140307
  Transmission Date: 20141002
  Serious: Yes (Hospitalization)
  Sender: FDA-Public Use
  Company Number: PHHY2012JP006867

PATIENT
  Age: 53 Year
  Sex: Male
  Weight: 64 kg

DRUGS (16)
  1. TEGRETOL [Suspect]
     Indication: SENSORY DISTURBANCE
     Dosage: 100 MG, BID
     Route: 048
     Dates: start: 20110401, end: 20110425
  2. TEGRETOL [Suspect]
     Route: 048
     Dates: start: 20110510
  3. CRESTOR [Concomitant]
     Indication: DYSLIPIDAEMIA
     Dosage: 5 MG, UNK
     Route: 048
     Dates: start: 20090514
  4. GASTER D [Concomitant]
     Indication: ABDOMINAL PAIN UPPER
     Dosage: 20 MG, UNK
     Route: 048
     Dates: start: 20090708
  5. TRYPTANOL [Concomitant]
     Indication: INSOMNIA
     Dosage: 10 MG, UNK
     Route: 048
     Dates: start: 20090810
  6. HARNAL [Concomitant]
     Indication: DYSURIA
     Dosage: 0.2 MG, UNK
     Route: 048
     Dates: start: 20090713
  7. VESICARE [Concomitant]
     Indication: DYSURIA
     Dosage: 5 MG, UNK
     Route: 048
     Dates: start: 20090713
  8. MAGNESIUM OXIDE [Concomitant]
  9. SULPIRIDE [Concomitant]
  10. SUCCINATE SODIUM [Concomitant]
  11. GLIMEPIRIDE [Concomitant]
  12. TAMSULOSIN HYDROCHLORIDE [Concomitant]
  13. SENNOSIDE [Concomitant]
  14. NITROGLYCERIN [Concomitant]
  15. LANSOPRAZOLE [Concomitant]
  16. BROTIZOLAM [Concomitant]

REACTIONS (16)
  - Cytomegalovirus test positive [Unknown]
  - Drug reaction with eosinophilia and systemic symptoms [Unknown]
  - Jaundice [Recovered/Resolved]
  - Rash generalised [Not Recovered/Not Resolved]
  - Drug eruption [Not Recovered/Not Resolved]
  - Lymphadenopathy [Not Recovered/Not Resolved]
  - Rash erythematous [Unknown]
  - Liver disorder [Not Recovered/Not Resolved]
  - Rash [Recovering/Resolving]
  - Skin erosion [Unknown]
  - Malaise [Unknown]
  - Generalised oedema [Unknown]
  - Pyrexia [Recovered/Resolved]
  - Dermatitis exfoliative [Recovered/Resolved]
  - Hepatic function abnormal [Recovered/Resolved]
  - White blood cell count increased [Unknown]
